FAERS Safety Report 24165948 (Version 1)
Quarter: 2024Q3

REPORT INFORMATION
  Report Type: Spontaneous
  Country: FR (occurrence: FR)
  Receive Date: 20240802
  Receipt Date: 20240802
  Transmission Date: 20241016
  Serious: Yes (Hospitalization, Other)
  Sender: SANOFI AVENTIS
  Company Number: None

PATIENT

DRUGS (4)
  1. LOVENOX [Suspect]
     Active Substance: ENOXAPARIN SODIUM
     Indication: Cardiac valve prosthesis user
     Dosage: 16000 IU, QD (0.8MLX2/D)
     Route: 064
     Dates: start: 202301
  2. COUMADIN [Suspect]
     Active Substance: WARFARIN SODIUM
     Indication: Cardiac valve prosthesis user
     Dosage: UNK
     Route: 064
     Dates: start: 201512, end: 202301
  3. PHLOROGLUCINOL [Concomitant]
     Active Substance: PHLOROGLUCINOL
     Dosage: UNK
  4. FERROUS SULFATE [Concomitant]
     Active Substance: FERROUS SULFATE
     Dosage: UNK

REACTIONS (3)
  - Oligohydramnios [Recovered/Resolved]
  - Foetal growth restriction [Recovered/Resolved]
  - Maternal exposure during pregnancy [Recovered/Resolved]
